FAERS Safety Report 14387955 (Version 3)
Quarter: 2020Q1

REPORT INFORMATION
  Report Type: Spontaneous
  Country: US (occurrence: US)
  Receive Date: 20180115
  Receipt Date: 20200131
  Transmission Date: 20200409
  Serious: Yes (Other)
  Sender: FDA-Public Use
  Company Number: US-SA-2017SA201350

PATIENT
  Age: 62 Year
  Sex: Female
  Weight: 74 kg

DRUGS (12)
  1. PARAPLATIN [Concomitant]
     Active Substance: CARBOPLATIN
     Indication: BREAST CANCER FEMALE
  2. METOPROLOL. [Concomitant]
     Active Substance: METOPROLOL
     Indication: BREAST CANCER FEMALE
     Dosage: UNK UNK,UNK
     Route: 065
     Dates: start: 2000
  3. TAXOTERE [Suspect]
     Active Substance: DOCETAXEL
     Dosage: 135 UNK, Q3W
     Route: 042
     Dates: start: 20100318, end: 20100318
  4. BUPROPION. [Concomitant]
     Active Substance: BUPROPION
     Indication: BREAST CANCER FEMALE
     Dosage: UNK UNK,UNK
     Route: 065
     Dates: start: 2006
  5. SYNTHROID [Concomitant]
     Active Substance: LEVOTHYROXINE SODIUM
     Indication: BREAST CANCER FEMALE
     Dosage: UNK UNK,UNK
     Route: 065
     Dates: start: 2000
  6. TYLENOL [Concomitant]
     Active Substance: ACETAMINOPHEN
     Dosage: UNK
     Dates: start: 2007
  7. AMILORIDE [Concomitant]
     Active Substance: AMILORIDE
     Dosage: UNK
  8. METOPROLOL. [Concomitant]
     Active Substance: METOPROLOL
     Dosage: UNK
  9. TAXOTERE [Suspect]
     Active Substance: DOCETAXEL
     Indication: BREAST CANCER FEMALE
     Dosage: 135 UNK, Q3W
     Route: 042
     Dates: start: 20091203, end: 20091203
  10. LEVOTHYROXINE. [Concomitant]
     Active Substance: LEVOTHYROXINE
  11. AMILORIDE [Concomitant]
     Active Substance: AMILORIDE
     Dosage: UNK UNK,UNK
     Route: 065
     Dates: start: 2000
  12. CARBOPLATIN. [Concomitant]
     Active Substance: CARBOPLATIN
     Indication: BREAST CANCER FEMALE

REACTIONS (2)
  - Alopecia [Recovering/Resolving]
  - Psychological trauma [Unknown]

NARRATIVE: CASE EVENT DATE: 2010
